FAERS Safety Report 6434773-3 (Version None)
Quarter: 2009Q4

REPORT INFORMATION
  Report Type: 
  Country: None (occurrence: None)
  Receive Date: 20091110
  Receipt Date: 20091029
  Transmission Date: 20100525
  Serious: Yes (Other)
  Sender: FDA-Public Use
  Company Number: US-PFIZER INC-2009292597

PATIENT
  Sex: Female
  Weight: 63.492 kg

DRUGS (6)
  1. REVATIO [Suspect]
     Indication: PULMONARY HYPERTENSION
     Dosage: 20 MG, 2X/DAY
     Route: 048
     Dates: start: 20091001
  2. VERAPAMIL HCL [Interacting]
     Indication: HYPERTENSION
     Dosage: 120 MG, 1X/DAY
     Route: 048
  3. MEDROL [Interacting]
     Indication: GOUT
     Dosage: FREQUENCY: 2X/DAY,
     Route: 048
     Dates: start: 20091001
  4. LASIX [Interacting]
     Indication: HYPERTENSION
     Dosage: 20 MG, UNK
     Route: 048
  5. DIOVAN [Interacting]
     Indication: HYPERTENSION
     Dosage: 80 MG, 1X/DAY
     Route: 048
  6. FEBUXOSTAT [Concomitant]
     Indication: GOUT
     Dosage: 40 MG, UNK

REACTIONS (5)
  - DIARRHOEA [None]
  - DRUG INTERACTION [None]
  - INTENTIONAL DRUG MISUSE [None]
  - PALPITATIONS [None]
  - RHINORRHOEA [None]
